FAERS Safety Report 18728134 (Version 1)
Quarter: 2021Q1

REPORT INFORMATION
  Report Type: Spontaneous
  Country: US (occurrence: US)
  Receive Date: 20210111
  Receipt Date: 20210111
  Transmission Date: 20210419
  Serious: Yes (Hospitalization, Other)
  Sender: FDA-Public Use
  Company Number: US-LUPIN PHARMACEUTICALS INC.-2020-11656

PATIENT
  Age: 67 Year
  Sex: Female

DRUGS (2)
  1. CALCIUM [Suspect]
     Active Substance: CALCIUM
     Indication: MINERAL SUPPLEMENTATION
     Dosage: 500 MILLIGRAM, TID
     Route: 065
  2. LITHIUM. [Concomitant]
     Active Substance: LITHIUM
     Indication: BIPOLAR DISORDER
     Dosage: UNK
     Route: 065

REACTIONS (5)
  - Blood parathyroid hormone decreased [Recovered/Resolved]
  - Confusional state [Unknown]
  - Hallucination, visual [Unknown]
  - Acute kidney injury [Recovered/Resolved]
  - Asthenia [Unknown]
